FAERS Safety Report 21396151 (Version 13)
Quarter: 2023Q4

REPORT INFORMATION
  Report Type: Report from Study
  Country: US (occurrence: US)
  Receive Date: 20220930
  Receipt Date: 20231212
  Transmission Date: 20240109
  Serious: Yes (Hospitalization, Other)
  Sender: FDA-Public Use
  Company Number: US-BoehringerIngelheim-2022-BI-154379

PATIENT
  Sex: Female
  Weight: 43.9 kg

DRUGS (8)
  1. OFEV [Suspect]
     Active Substance: NINTEDANIB
     Indication: Pulmonary fibrosis
     Dosage: LOT# 106515, 106516
     Route: 048
     Dates: start: 20220203, end: 20220614
  2. OFEV [Suspect]
     Active Substance: NINTEDANIB
     Indication: Idiopathic pulmonary fibrosis
     Route: 048
     Dates: start: 20220626
  3. OFEV [Suspect]
     Active Substance: NINTEDANIB
     Route: 048
  4. OFEV [Suspect]
     Active Substance: NINTEDANIB
     Route: 048
     Dates: start: 20220203
  5. OFEV [Suspect]
     Active Substance: NINTEDANIB
     Dosage: 100MG BID 2 OR 3 TIMES AWEEK,
     Dates: start: 202310
  6. AGGRENOX [Concomitant]
     Active Substance: ASPIRIN\DIPYRIDAMOLE
     Indication: Product used for unknown indication
  7. APIXABAN [Concomitant]
     Active Substance: APIXABAN
     Indication: Product used for unknown indication
     Dates: start: 2022
  8. PREDNISONE [Concomitant]
     Active Substance: PREDNISONE
     Indication: Product used for unknown indication
     Dates: start: 202309

REACTIONS (42)
  - Glaucoma [Unknown]
  - Idiopathic pulmonary fibrosis [Not Recovered/Not Resolved]
  - COVID-19 pneumonia [Recovered/Resolved]
  - Syncope [Unknown]
  - Bone contusion [Unknown]
  - Radiation pneumonitis [Unknown]
  - Infection [Recovered/Resolved]
  - Fatigue [Recovering/Resolving]
  - Dyspnoea [Recovering/Resolving]
  - Diarrhoea [Recovered/Resolved]
  - Cough [Recovering/Resolving]
  - Dyspepsia [Unknown]
  - Abdominal discomfort [Recovering/Resolving]
  - Oropharyngitis fungal [Unknown]
  - Vomiting [Not Recovered/Not Resolved]
  - Dehydration [Recovering/Resolving]
  - Headache [Unknown]
  - Pneumonia fungal [Recovered/Resolved]
  - Diarrhoea [Recovered/Resolved]
  - Nausea [Recovering/Resolving]
  - Stomatitis [Not Recovered/Not Resolved]
  - Nasal crusting [Not Recovered/Not Resolved]
  - Epistaxis [Recovered/Resolved]
  - Nasal discharge discolouration [Not Recovered/Not Resolved]
  - Cheilitis [Not Recovered/Not Resolved]
  - Lip pain [Not Recovered/Not Resolved]
  - Weight decreased [Recovering/Resolving]
  - Rhinalgia [Not Recovered/Not Resolved]
  - Oral candidiasis [Recovered/Resolved]
  - Decreased appetite [Unknown]
  - Insomnia [Unknown]
  - Asthenia [Unknown]
  - Faeces soft [Unknown]
  - Hypophagia [Unknown]
  - Cystitis [Not Recovered/Not Resolved]
  - Contusion [Not Recovered/Not Resolved]
  - Productive cough [Recovered/Resolved]
  - Haemoptysis [Recovered/Resolved]
  - Nasal ulcer [Unknown]
  - Lip haemorrhage [Unknown]
  - Seasonal allergy [Not Recovered/Not Resolved]
  - General physical health deterioration [Unknown]
